FAERS Safety Report 8792785 (Version 3)
Quarter: 2012Q4

REPORT INFORMATION
  Report Type: 
  Country: JP (occurrence: JP)
  Receive Date: 20120918
  Receipt Date: 20121002
  Transmission Date: 20130627
  Serious: No
  Sender: FDA-Public Use
  Company Number: JP-GLAXOSMITHKLINE-B0829089A

PATIENT
  Age: 2 Year
  Sex: Female
  Weight: 13 kg

DRUGS (3)
  1. ZOVIRAX [Suspect]
     Indication: VARICELLA
     Route: 048
     Dates: start: 20120902, end: 20120904
  2. POLARAMINE [Concomitant]
     Indication: VARICELLA
     Route: 048
     Dates: start: 20120902, end: 20120904
  3. PHENOL + ZINC OXIDE LINIMENT [Concomitant]
     Route: 061
     Dates: start: 20120902

REACTIONS (6)
  - Drug hypersensitivity [Recovered/Resolved]
  - Face oedema [Recovered/Resolved]
  - Erythema [Recovered/Resolved]
  - Pruritus generalised [Recovered/Resolved]
  - Swelling face [Unknown]
  - Generalised erythema [Recovering/Resolving]
